FAERS Safety Report 5423110-9 (Version None)
Quarter: 2007Q3

REPORT INFORMATION
  Report Type: 
  Country: None (occurrence: None)
  Receive Date: 20070821
  Receipt Date: 20070817
  Transmission Date: 20080115
  Serious: Yes (Death, Hospitalization)
  Sender: FDA-Public Use
  Company Number: 167-C5013-07070336

PATIENT
  Age: 36 Year
  Sex: Male
  Weight: 79 kg

DRUGS (13)
  1. CC-5013 (LENALIDOMIDE) (CAPSULES) [Suspect]
     Indication: MULTIPLE MYELOMA
     Dosage: 25 MG, OD FOR 21 DAYS, ORAL
     Route: 048
     Dates: start: 20070620, end: 20070702
  2. DEXAMETHASONE TAB [Suspect]
     Indication: MULTIPLE MYELOMA
     Dates: start: 20070620, end: 20070702
  3. PREDNISOLONE [Concomitant]
  4. ALLOPURINOL [Concomitant]
  5. FUROSEMIDE [Concomitant]
  6. PENICILLIN V [Concomitant]
  7. ITRACONAZOLE [Concomitant]
  8. ACYCLOVIR [Concomitant]
  9. CIPROFLOXACIN [Concomitant]
  10. METROCLOPRAMIDE (METOCLOPRAMIDE) [Concomitant]
  11. OMEPRAZOLE [Concomitant]
  12. QUININE SULFATE [Concomitant]
  13. ENOXAPARIN SODIUM [Concomitant]

REACTIONS (10)
  - CARDIOMEGALY [None]
  - CHOLESTASIS [None]
  - HEPATIC FAILURE [None]
  - HEPATIC STEATOSIS [None]
  - INFLAMMATION [None]
  - IRON OVERLOAD [None]
  - PLEURAL EFFUSION [None]
  - PNEUMONIA [None]
  - PULMONARY OEDEMA [None]
  - RENAL IMPAIRMENT [None]
